FAERS Safety Report 5383584-9 (Version None)
Quarter: 2007Q3

REPORT INFORMATION
  Report Type: 
  Country: None (occurrence: None)
  Receive Date: 20070706
  Receipt Date: 20070625
  Transmission Date: 20080115
  Serious: Yes (Other)
  Sender: FDA-Public Use
  Company Number: 16802

PATIENT
  Age: 57 Year
  Sex: Male
  Weight: 62 kg

DRUGS (4)
  1. CARBOPLATIN [Suspect]
     Indication: LARYNGEAL CANCER
     Dosage: 200 MG DAILY IV
     Route: 042
     Dates: start: 20070611, end: 20070611
  2. CARBOPLATIN [Suspect]
     Indication: METASTASES TO LUNG
     Dosage: 200 MG DAILY IV
     Route: 042
     Dates: start: 20070611, end: 20070611
  3. DEXA [Concomitant]
  4. RANITIDINE HCL [Concomitant]

REACTIONS (3)
  - BRONCHOSPASM [None]
  - DYSPNOEA [None]
  - HYPERSENSITIVITY [None]
